FAERS Safety Report 24354831 (Version 1)
Quarter: 2024Q3

REPORT INFORMATION
  Report Type: Spontaneous
  Country: US (occurrence: US)
  Receive Date: 20240923
  Receipt Date: 20240923
  Transmission Date: 20241017
  Serious: No
  Sender: ABBVIE
  Company Number: US-ABBVIE-5930995

PATIENT
  Sex: Female

DRUGS (2)
  1. VRAYLAR [Suspect]
     Active Substance: CARIPRAZINE
     Indication: Adjuvant therapy
     Dosage: LAST ADMIN DATE 2024?FORM STRENGTH: 1.5 MILLIGRAM
     Route: 048
     Dates: start: 202407
  2. PROZAC [Concomitant]
     Active Substance: FLUOXETINE HYDROCHLORIDE
     Indication: Depression
     Dosage: 40 MILLIGRAM

REACTIONS (2)
  - Tardive dyskinesia [Unknown]
  - Tremor [Unknown]

NARRATIVE: CASE EVENT DATE: 20240917
